FAERS Safety Report 8853380 (Version 3)
Quarter: 2013Q1

REPORT INFORMATION
  Report Type: Spontaneous
  Country: US (occurrence: US)
  Receive Date: 20121022
  Receipt Date: 20130111
  Transmission Date: 20140127
  Serious: Yes (Hospitalization)
  Sender: FDA-Public Use
  Company Number: US-US-EMD SERONO, INC.-7168506

PATIENT
  Sex: Female

DRUGS (6)
  1. REBIF [Suspect]
     Indication: RELAPSING-REMITTING MULTIPLE SCLEROSIS
     Route: 058
     Dates: start: 20120804
  2. REBIF [Suspect]
     Route: 058
  3. REBIF [Suspect]
     Route: 058
     Dates: end: 201210
  4. REBIF [Suspect]
     Route: 058
  5. PRESCRIPTION PAIN MEDICATION [Concomitant]
     Indication: PREMEDICATION
  6. VITAMIN D [Concomitant]
     Indication: VITAMIN D DEFICIENCY

REACTIONS (4)
  - Multiple sclerosis [Recovered/Resolved]
  - Throat irritation [Unknown]
  - Injection site pain [Unknown]
  - Influenza like illness [Unknown]
